FAERS Safety Report 10740437 (Version 1)
Quarter: 2015Q1

REPORT INFORMATION
  Report Type: Spontaneous
  Country: US (occurrence: None)
  Receive Date: 20150122
  Receipt Date: 20150122
  Transmission Date: 20150721
  Serious: Yes (Hospitalization)
  Sender: FDA-Public Use
  Company Number: None

PATIENT
  Age: 56 Year
  Sex: Male
  Weight: 116.4 kg

DRUGS (1)
  1. SCOPOLAMINE [Suspect]
     Active Substance: SCOPOLAMINE
     Indication: DRUG THERAPY
     Route: 061
     Dates: start: 20141020, end: 20141027

REACTIONS (1)
  - Angioedema [None]

NARRATIVE: CASE EVENT DATE: 20141025
